FAERS Safety Report 15092985 (Version 1)
Quarter: 2018Q3

REPORT INFORMATION
  Report Type: Spontaneous
  Country: US (occurrence: US)
  Receive Date: 20180629
  Receipt Date: 20180629
  Transmission Date: 20181010
  Serious: Yes (Other)
  Sender: FDA-Public Use
  Company Number: US-LPDUSPRD-20181176

PATIENT
  Age: 16 Year
  Sex: Female

DRUGS (3)
  1. GEMCITABINE [Suspect]
     Active Substance: GEMCITABINE\GEMCITABINE HYDROCHLORIDE
     Dosage: 1000MG/M2 Q 2 WEEKS
     Route: 065
  2. OXALIPLATIN. [Concomitant]
     Active Substance: OXALIPLATIN
     Dosage: 100 MG/M2 Q 2 WEEKS
     Route: 065
  3. INTENSITY MODULATED RADIATION THERAPY [Suspect]
     Active Substance: RADIATION THERAPY
     Dosage: TOTAL DOSE OF 70.2 GY
     Route: 065

REACTIONS (3)
  - Myositis [Unknown]
  - Recall phenomenon [Unknown]
  - Off label use [Unknown]
